FAERS Safety Report 11122021 (Version 1)
Quarter: 2015Q2

REPORT INFORMATION
  Report Type: Spontaneous
  Country: ES (occurrence: ES)
  Receive Date: 20150519
  Receipt Date: 20150519
  Transmission Date: 20150821
  Serious: Yes (Other)
  Sender: FDA-Public Use
  Company Number: ES-ACTELION-A-CH2015-117695

PATIENT
  Age: 4 Year
  Sex: Female

DRUGS (2)
  1. SILDENAFIL. [Concomitant]
     Active Substance: SILDENAFIL
  2. TRACLEER [Suspect]
     Active Substance: BOSENTAN\BOSENTAN MONOHYDRATE
     Indication: SYSTEMIC-PULMONARY ARTERY SHUNT
     Dosage: 31.25 MG, BID
     Route: 048

REACTIONS (2)
  - Epilepsy [Unknown]
  - Nervous system disorder [Unknown]
